FAERS Safety Report 5681998-0 (Version None)
Quarter: 2008Q1

REPORT INFORMATION
  Report Type: 
  Country: None (occurrence: None)
  Receive Date: 20080327
  Receipt Date: 20070807
  Transmission Date: 20080703
  Serious: No
  Sender: FDA-Public Use
  Company Number: US-BAYER-US-2007-011923

PATIENT
  Age: 37 Year
  Sex: Female
  Weight: 50 kg

DRUGS (2)
  1. MIRENA [Suspect]
     Indication: CONTRACEPTION
     Route: 015
     Dates: start: 20061218
  2. LOVENOX [Concomitant]
     Indication: THROMBOSIS
     Dosage: UNIT DOSE: 60 MG
     Route: 058

REACTIONS (3)
  - NAUSEA [None]
  - NIGHT SWEATS [None]
  - OVARIAN CYST [None]
